FAERS Safety Report 5821465-4 (Version None)
Quarter: 2008Q3

REPORT INFORMATION
  Report Type: 
  Country: None (occurrence: None)
  Receive Date: 20080724
  Receipt Date: 20080716
  Transmission Date: 20090109
  Serious: Yes (Other)
  Sender: FDA-Public Use
  Company Number: B0527538A

PATIENT
  Age: 51 Year
  Weight: 98 kg

DRUGS (5)
  1. CLENIL [Suspect]
     Indication: ASTHMA
     Dosage: 500MCG PER DAY
     Route: 055
     Dates: start: 20080507, end: 20080508
  2. BETNOVATE [Concomitant]
     Indication: ECZEMA
     Route: 061
     Dates: start: 20080212
  3. CODYDRAMOL [Concomitant]
     Indication: NECK PAIN
     Route: 048
     Dates: start: 20080212
  4. PAROXETINE HCL [Concomitant]
     Indication: DEPRESSION
     Dosage: 20MG PER DAY
     Route: 048
     Dates: start: 20080212
  5. VENTOLIN [Concomitant]
     Indication: ASTHMA
     Route: 055

REACTIONS (4)
  - ABDOMINAL PAIN UPPER [None]
  - EYE PRURITUS [None]
  - LIP SWELLING [None]
  - RASH [None]
